FAERS Safety Report 5812081-9 (Version None)
Quarter: 2008Q3

REPORT INFORMATION
  Report Type: 
  Country: None (occurrence: None)
  Receive Date: 20080716
  Receipt Date: 20080627
  Transmission Date: 20090109
  Serious: No
  Sender: FDA-Public Use
  Company Number: US-BOEHRINGER INGELHEIM GMBH, GERMANY-2008-BP-10062BP

PATIENT
  Age: 65 Year
  Sex: Male

DRUGS (2)
  1. SPIRIVA [Suspect]
     Indication: BRONCHITIS CHRONIC
     Route: 055
     Dates: start: 20080201
  2. ZOCOR [Concomitant]

REACTIONS (4)
  - DRUG INEFFECTIVE [None]
  - FATIGUE [None]
  - OROPHARYNGEAL PAIN [None]
  - RHINORRHOEA [None]
